FAERS Safety Report 8938115 (Version 1)
Quarter: 2012Q4

REPORT INFORMATION
  Report Type: Spontaneous
  Country: US (occurrence: None)
  Receive Date: 20121128
  Receipt Date: 20121128
  Transmission Date: 20130627
  Serious: No
  Sender: FDA-Public Use
  Company Number: None

PATIENT
  Age: 23 Year
  Sex: Female

DRUGS (1)
  1. MICROGESTIN 1/20 [Suspect]
     Dates: start: 20120612, end: 20121025

REACTIONS (5)
  - Nausea [None]
  - Rash [None]
  - Blister [None]
  - Rash papular [None]
  - Rash pruritic [None]
